FAERS Safety Report 18646187 (Version 3)
Quarter: 2021Q3

REPORT INFORMATION
  Report Type: Spontaneous
  Country: NZ (occurrence: NZ)
  Receive Date: 20201222
  Receipt Date: 20210803
  Transmission Date: 20211014
  Serious: Yes (Other)
  Sender: FDA-Public Use
  Company Number: NZ-AMGEN-NZLSP2020203089

PATIENT
  Sex: Female

DRUGS (1)
  1. ENBREL [Suspect]
     Active Substance: ETANERCEPT
     Indication: PRODUCT USED FOR UNKNOWN INDICATION
     Dosage: UNK, WEEKLY
     Route: 065

REACTIONS (4)
  - Intentional dose omission [Unknown]
  - Dementia [Unknown]
  - Device use error [Unknown]
  - Memory impairment [Unknown]

NARRATIVE: CASE EVENT DATE: 20201130
